FAERS Safety Report 22275239 (Version 3)
Quarter: 2023Q2

REPORT INFORMATION
  Report Type: Report from Study
  Country: US (occurrence: US)
  Receive Date: 20230502
  Receipt Date: 20230616
  Transmission Date: 20230721
  Serious: Yes (Hospitalization)
  Sender: FDA-Public Use
  Company Number: US-PFIZER INC-PV202300078460

PATIENT
  Age: 50 Year
  Sex: Male

DRUGS (4)
  1. INVESTIGATIONAL PRODUCT [Suspect]
     Active Substance: INVESTIGATIONAL PRODUCT
     Indication: Oesophageal adenocarcinoma
     Dosage: 150 MG, 1X/DAY (QD)
     Route: 048
     Dates: start: 20230327, end: 20230427
  2. BINIMETINIB [Suspect]
     Active Substance: BINIMETINIB
     Indication: Oesophageal adenocarcinoma
     Dosage: 45 MG, 2X/DAY (BID)
     Route: 048
     Dates: start: 20230327, end: 20230427
  3. ZOFRAN [Concomitant]
     Active Substance: ONDANSETRON HYDROCHLORIDE
     Indication: Nausea
     Dosage: 8 MG, 3X/DAY (Q8H)
     Route: 048
     Dates: start: 20230406
  4. LISINOPRIL [Concomitant]
     Active Substance: LISINOPRIL
     Indication: Hypertension
     Dosage: 10 MG, 1X/DAY
     Route: 048
     Dates: start: 20230327

REACTIONS (1)
  - Hypotension [Recovered/Resolved]

NARRATIVE: CASE EVENT DATE: 20230426
